FAERS Safety Report 14213971 (Version 1)
Quarter: 2017Q4

REPORT INFORMATION
  Report Type: Spontaneous
  Country: FR (occurrence: FR)
  Receive Date: 20171122
  Receipt Date: 20171122
  Transmission Date: 20180321
  Serious: Yes (Other)
  Sender: FDA-Public Use
  Company Number: FR-MERCK KGAA-2034865

PATIENT
  Age: 69 Year
  Sex: Female

DRUGS (1)
  1. NOVOTHYROX [Suspect]
     Active Substance: LEVOTHYROXINE SODIUM
     Indication: THYROID DISORDER
     Dates: start: 201709, end: 201710

REACTIONS (6)
  - Diabetes mellitus [None]
  - Dyspnoea [None]
  - Blood thyroid stimulating hormone increased [None]
  - Pain [None]
  - Dyspepsia [None]
  - Fatigue [None]

NARRATIVE: CASE EVENT DATE: 2017
